FAERS Safety Report 5260846-7 (Version None)
Quarter: 2007Q1

REPORT INFORMATION
  Report Type: 
  Country: None (occurrence: None)
  Receive Date: 20070309
  Receipt Date: 20070227
  Transmission Date: 20070707
  Serious: Yes (Other)
  Sender: FDA-Public Use
  Company Number: US-JNJFOC-20070300273

PATIENT
  Age: 55 Year
  Sex: Female
  Weight: 136.08 kg

DRUGS (9)
  1. RISPERDAL [Suspect]
     Indication: DISSOCIATION
     Route: 048
  2. RISPERDAL [Suspect]
     Indication: MAJOR DEPRESSION
     Route: 048
  3. RISPERDAL [Suspect]
     Indication: POST-TRAUMATIC STRESS DISORDER
     Route: 048
  4. OXYCONTIN [Concomitant]
  5. WELLBUTRIN [Concomitant]
  6. DULOXETINE HYDROCHLORIDE [Concomitant]
  7. NURONTIN [Concomitant]
  8. AMBIEN [Concomitant]
  9. PREVACID [Concomitant]

REACTIONS (4)
  - ELECTROCARDIOGRAM ABNORMAL [None]
  - GLUCOSE TOLERANCE IMPAIRED [None]
  - OVARIAN MASS [None]
  - URTICARIA [None]
